FAERS Safety Report 16791415 (Version 2)
Quarter: 2019Q4

REPORT INFORMATION
  Report Type: Spontaneous
  Country: US (occurrence: US)
  Receive Date: 20190910
  Receipt Date: 20191105
  Transmission Date: 20200122
  Serious: No
  Sender: FDA-Public Use
  Company Number: US-NEUROCRINE BIOSCIENCES INC.-2019NBI02497

PATIENT
  Age: 16 Year
  Sex: Male

DRUGS (14)
  1. GLUCOPHAGE [Concomitant]
     Active Substance: METFORMIN HYDROCHLORIDE
     Dosage: WITH MEAL
     Route: 048
  2. INGREZZA [Suspect]
     Active Substance: VALBENAZINE
     Indication: AFFECTIVE DISORDER
     Dates: start: 20190227, end: 20190819
  3. OMEPRAZOLE. [Concomitant]
     Active Substance: OMEPRAZOLE
     Route: 048
  4. PROBIOTIC [Concomitant]
     Active Substance: PROBIOTICS NOS
     Route: 048
  5. APTENSIO [Concomitant]
     Dosage: MORNING
     Route: 048
  6. MIRALAX [Concomitant]
     Active Substance: POLYETHYLENE GLYCOL 3350
     Dosage: 0.2 GM/KG MIX WITH  TO 8 OUNCES FLUID AS NEEDED
     Route: 048
  7. MULTIVITAMIN [Concomitant]
     Active Substance: VITAMINS
     Route: 048
  8. PROZAC [Concomitant]
     Active Substance: FLUOXETINE HYDROCHLORIDE
     Route: 048
  9. FANAPT [Concomitant]
     Active Substance: ILOPERIDONE
     Route: 048
  10. FANAPT [Concomitant]
     Active Substance: ILOPERIDONE
     Indication: PSYCHOTIC DISORDER
     Route: 048
  11. METFORMIN [Concomitant]
     Active Substance: METFORMIN HYDROCHLORIDE
     Route: 048
  12. INGREZZA [Suspect]
     Active Substance: VALBENAZINE
     Indication: TARDIVE DYSKINESIA
  13. VITAMIN D [Concomitant]
     Active Substance: VITAMIN D NOS
     Dosage: 2000 UNIT
     Route: 048
  14. LEVOCARNITINE. [Concomitant]
     Active Substance: LEVOCARNITINE
     Dosage: 5 ML OF 500 MG
     Route: 048

REACTIONS (3)
  - Dystonia [Recovered/Resolved]
  - Off label use [Unknown]
  - Musculoskeletal stiffness [Recovered/Resolved]

NARRATIVE: CASE EVENT DATE: 20190806
